FAERS Safety Report 8586616-X (Version None)
Quarter: 2012Q3

REPORT INFORMATION
  Report Type: 
  Country: None (occurrence: None)
  Receive Date: 20120810
  Receipt Date: 20120803
  Transmission Date: 20120928
  Serious: Yes (Hospitalization, Other)
  Sender: FDA-Public Use
  Company Number: CN-JNJFOC-20120601435

PATIENT
  Age: 73 Year
  Sex: Female

DRUGS (6)
  1. RISPERDAL [Suspect]
     Route: 048
  2. RISPERDAL [Suspect]
     Indication: SCHIZOPHRENIA
     Dosage: 0.5-1 MG
     Route: 048
  3. RISPERDAL [Suspect]
     Dosage: 0.5-1 MG
     Route: 048
  4. RISPERDAL [Suspect]
     Indication: DEMENTIA ALZHEIMER'S TYPE
     Route: 048
  5. RISPERDAL [Suspect]
     Route: 048
     Dates: start: 20120522, end: 20120527
  6. RISPERDAL [Suspect]
     Route: 048
     Dates: start: 20120522, end: 20120527

REACTIONS (3)
  - INTENTIONAL DRUG MISUSE [None]
  - HAEMORRHAGE INTRACRANIAL [None]
  - HOSPITALISATION [None]
